FAERS Safety Report 23109472 (Version 1)
Quarter: 2023Q4

REPORT INFORMATION
  Report Type: Other
  Country: CN (occurrence: CN)
  Receive Date: 20231026
  Receipt Date: 20231026
  Transmission Date: 20240110
  Serious: Yes (Hospitalization)
  Sender: FDA-Public Use
  Company Number: CN-Zuellig Korea-ATNAHS20231003149

PATIENT
  Age: 18 Year
  Sex: Female

DRUGS (44)
  1. DIAZEPAM [Suspect]
     Active Substance: DIAZEPAM
     Indication: Tardive dyskinesia
     Route: 065
     Dates: start: 20201225
  2. QUETIAPINE [Suspect]
     Active Substance: QUETIAPINE
     Indication: Hallucination, auditory
     Route: 065
  3. QUETIAPINE [Suspect]
     Active Substance: QUETIAPINE
     Indication: Abnormal behaviour
     Route: 065
     Dates: start: 20201225
  4. QUETIAPINE [Suspect]
     Active Substance: QUETIAPINE
     Indication: Tardive dyskinesia
     Route: 065
     Dates: start: 20210104
  5. QUETIAPINE [Suspect]
     Active Substance: QUETIAPINE
     Route: 065
     Dates: start: 20210116
  6. QUETIAPINE [Suspect]
     Active Substance: QUETIAPINE
     Route: 065
     Dates: start: 20210118
  7. BACLOFEN [Suspect]
     Active Substance: BACLOFEN
     Indication: Tardive dyskinesia
     Route: 065
     Dates: start: 20201225
  8. BACLOFEN [Suspect]
     Active Substance: BACLOFEN
     Route: 065
     Dates: start: 20210104
  9. BACLOFEN [Suspect]
     Active Substance: BACLOFEN
     Route: 065
     Dates: start: 20210116
  10. BACLOFEN [Suspect]
     Active Substance: BACLOFEN
     Route: 065
     Dates: start: 20210118
  11. BACLOFEN [Suspect]
     Active Substance: BACLOFEN
     Route: 065
     Dates: start: 20210125
  12. BACLOFEN [Suspect]
     Active Substance: BACLOFEN
     Route: 065
     Dates: start: 20210301
  13. BACLOFEN [Suspect]
     Active Substance: BACLOFEN
     Route: 065
     Dates: start: 20210630
  14. VITAMIN B6 [Suspect]
     Active Substance: PYRIDOXINE HYDROCHLORIDE
     Indication: Tardive dyskinesia
     Route: 065
     Dates: start: 20201225
  15. VITAMIN B6 [Suspect]
     Active Substance: PYRIDOXINE HYDROCHLORIDE
     Route: 065
     Dates: start: 20210104
  16. VALPROIC ACID [Suspect]
     Active Substance: VALPROIC ACID
     Indication: Tardive dyskinesia
     Route: 065
     Dates: start: 20201225
  17. VALPROIC ACID [Suspect]
     Active Substance: VALPROIC ACID
     Route: 065
     Dates: start: 20210104
  18. LORAZEPAM [Suspect]
     Active Substance: LORAZEPAM
     Indication: Tardive dyskinesia
     Route: 065
     Dates: start: 20210104
  19. LORAZEPAM [Suspect]
     Active Substance: LORAZEPAM
     Route: 065
     Dates: start: 20210116
  20. OLANZAPINE [Suspect]
     Active Substance: OLANZAPINE
     Indication: Tardive dyskinesia
     Route: 065
     Dates: start: 20210118
  21. OLANZAPINE [Suspect]
     Active Substance: OLANZAPINE
     Route: 065
     Dates: start: 20210125
  22. OLANZAPINE [Suspect]
     Active Substance: OLANZAPINE
     Route: 065
     Dates: start: 20210301
  23. OLANZAPINE [Suspect]
     Active Substance: OLANZAPINE
     Route: 065
     Dates: start: 20210630
  24. CLONAZEPAM [Suspect]
     Active Substance: CLONAZEPAM
     Indication: Tardive dyskinesia
     Route: 065
     Dates: start: 20201225
  25. CLONAZEPAM [Suspect]
     Active Substance: CLONAZEPAM
     Route: 065
     Dates: start: 20210104
  26. CLONAZEPAM [Suspect]
     Active Substance: CLONAZEPAM
     Route: 065
     Dates: start: 20210116
  27. CLONAZEPAM [Suspect]
     Active Substance: CLONAZEPAM
     Route: 065
     Dates: start: 20210118
  28. CLONAZEPAM [Suspect]
     Active Substance: CLONAZEPAM
     Route: 065
     Dates: start: 20210125
  29. CLONAZEPAM [Suspect]
     Active Substance: CLONAZEPAM
     Route: 065
     Dates: start: 20210301
  30. CLONAZEPAM [Suspect]
     Active Substance: CLONAZEPAM
     Route: 065
     Dates: start: 20210630
  31. AMANTADINE [Suspect]
     Active Substance: AMANTADINE
     Indication: Tardive dyskinesia
     Route: 065
     Dates: start: 20201225
  32. AMANTADINE [Suspect]
     Active Substance: AMANTADINE
     Route: 065
     Dates: start: 20210104
  33. GABAPENTIN [Suspect]
     Active Substance: GABAPENTIN
     Indication: Tardive dyskinesia
     Route: 065
     Dates: start: 20210116
  34. GABAPENTIN [Suspect]
     Active Substance: GABAPENTIN
     Route: 065
     Dates: start: 20210118
  35. GABAPENTIN [Suspect]
     Active Substance: GABAPENTIN
     Route: 065
     Dates: start: 20210125
  36. GABAPENTIN [Suspect]
     Active Substance: GABAPENTIN
     Route: 065
     Dates: start: 20210301
  37. GABAPENTIN [Suspect]
     Active Substance: GABAPENTIN
     Route: 065
     Dates: start: 20210630
  38. CELECOXIB [Suspect]
     Active Substance: CELECOXIB
     Indication: Limb discomfort
     Route: 065
     Dates: start: 20201225
  39. CELECOXIB [Suspect]
     Active Substance: CELECOXIB
     Route: 065
     Dates: start: 20210104
  40. ZIPRASIDONE [Concomitant]
     Active Substance: ZIPRASIDONE
     Indication: Hallucination, auditory
  41. ZIPRASIDONE [Concomitant]
     Active Substance: ZIPRASIDONE
     Indication: Abnormal behaviour
  42. TRIHEXYPHENIDYL HYDROCHLORIDE [Concomitant]
     Active Substance: TRIHEXYPHENIDYL HYDROCHLORIDE
     Indication: Extrapyramidal disorder
  43. GINKGO [Concomitant]
     Active Substance: GINKGO
     Indication: Tardive dyskinesia
  44. DOPAMINE [Concomitant]
     Active Substance: DOPAMINE HYDROCHLORIDE
     Indication: Product used for unknown indication

REACTIONS (6)
  - Fatigue [Unknown]
  - Dehydration [Unknown]
  - Arthralgia [Not Recovered/Not Resolved]
  - Dyskinesia [Not Recovered/Not Resolved]
  - Tardive dyskinesia [Not Recovered/Not Resolved]
  - Off label use [Unknown]
